FAERS Safety Report 8936931 (Version 1)
Quarter: 2012Q4

REPORT INFORMATION
  Report Type: 
  Country: US (occurrence: US)
  Receive Date: 20121130
  Receipt Date: 20121130
  Transmission Date: 20130627
  Serious: No
  Sender: FDA-Public Use
  Company Number: US-009507513-1211USA011766

PATIENT
  Sex: Female

DRUGS (1)
  1. EMEND [Suspect]
     Indication: CHEMOTHERAPY
     Dosage: 150 ml, UNK
     Route: 042

REACTIONS (1)
  - Infusion site erythema [Recovered/Resolved]
